FAERS Safety Report 6720726-4 (Version None)
Quarter: 2010Q2

REPORT INFORMATION
  Report Type: 
  Country: None (occurrence: None)
  Receive Date: 20100512
  Receipt Date: 20100503
  Transmission Date: 20101027
  Serious: Yes (Hospitalization)
  Sender: FDA-Public Use
  Company Number: US-BIOGENIDEC-2010BI014891

PATIENT
  Age: 58 Year
  Sex: Male
  Weight: 87 kg

DRUGS (1)
  1. TYSABRI [Suspect]
     Indication: MULTIPLE SCLEROSIS
     Route: 042
     Dates: start: 20090301, end: 20100201

REACTIONS (5)
  - ABDOMINAL PAIN [None]
  - BACK PAIN [None]
  - MEMORY IMPAIRMENT [None]
  - MENTAL DISORDER [None]
  - PANCREATITIS [None]
